FAERS Safety Report 15794757 (Version 2)
Quarter: 2019Q1

REPORT INFORMATION
  Report Type: Spontaneous
  Country: US (occurrence: US)
  Receive Date: 20190107
  Receipt Date: 20190123
  Transmission Date: 20190417
  Serious: Yes (Other)
  Sender: FDA-Public Use
  Company Number: US-FRESENIUS KABI-FK201900098

PATIENT
  Age: 77 Year
  Sex: Female
  Weight: 102 kg

DRUGS (5)
  1. HEPARIN SODIUM INJECTION, USP [Suspect]
     Active Substance: HEPARIN SODIUM
     Indication: ANTICOAGULANT THERAPY
     Dosage: AT 1021
     Route: 042
     Dates: start: 20181231, end: 20181231
  2. HEPARIN SODIUM INJECTION, USP [Suspect]
     Active Substance: HEPARIN SODIUM
     Dosage: AT AN UNKNOWN TIME BETWEEN 1046 AND 1119.
     Route: 042
     Dates: start: 20181231, end: 20181231
  3. HEPARIN SODIUM INJECTION, USP [Suspect]
     Active Substance: HEPARIN SODIUM
  4. TENECTEPLASE [Concomitant]
     Active Substance: TENECTEPLASE
     Indication: PRODUCT USED FOR UNKNOWN INDICATION
     Dosage: UNKNOWN
     Route: 065
     Dates: start: 20181231, end: 20181231
  5. HEPARIN SODIUM INJECTION, USP [Suspect]
     Active Substance: HEPARIN SODIUM

REACTIONS (1)
  - Drug effect decreased [Recovering/Resolving]

NARRATIVE: CASE EVENT DATE: 20181231
